FAERS Safety Report 8562138 (Version 3)
Quarter: 2012Q4

REPORT INFORMATION
  Report Type: 
  Country: BR (occurrence: BR)
  Receive Date: 20120515
  Receipt Date: 20121031
  Transmission Date: 20130627
  Serious: Yes (Other)
  Sender: FDA-Public Use
  Company Number: PHHY2012BR040697

PATIENT
  Age: 23 Year
  Sex: Female

DRUGS (5)
  1. CICLOSPORIN [Suspect]
     Indication: RENAL TRANSPLANT
     Dosage: 25 mg, QID
     Route: 048
  2. CICLOSPORIN [Suspect]
     Dosage: 100 mg, QID
     Route: 048
  3. MYFORTIC [Suspect]
     Indication: RENAL TRANSPLANT
     Dosage: 2 DF, daily
     Route: 048
     Dates: end: 201202
  4. PROGRAF [Suspect]
     Indication: RENAL TRANSPLANT
     Dosage: 2 DF, daily
     Route: 048
     Dates: end: 201203
  5. AZATHIOPRINE [Suspect]
     Indication: RENAL TRANSPLANT
     Dosage: 1 DF, daily
     Route: 048
     Dates: start: 201202

REACTIONS (2)
  - Abortion spontaneous [Unknown]
  - Exposure during pregnancy [Unknown]
